FAERS Safety Report 8758092 (Version 1)
Quarter: 2012Q4

REPORT INFORMATION
  Report Type: 
  Country: US (occurrence: US)
  Receive Date: 20120828
  Receipt Date: 20120828
  Transmission Date: 20130627
  Serious: No
  Sender: FDA-Public Use
  Company Number: US-ASTRAZENECA-2012SE32943

PATIENT
  Age: 52 Year
  Sex: Male
  Weight: 127 kg

DRUGS (15)
  1. TOPROL XL [Suspect]
     Indication: VENTRICULAR EXTRASYSTOLES
     Route: 048
  2. TOPROL XL [Suspect]
     Indication: HYPERTENSION
     Route: 048
  3. TOPROL XL [Suspect]
     Indication: SUPRAVENTRICULAR EXTRASYSTOLES
     Route: 048
  4. TOPROL XL [Suspect]
     Indication: VENTRICULAR EXTRASYSTOLES
     Route: 048
  5. TOPROL XL [Suspect]
     Indication: HYPERTENSION
     Route: 048
  6. TOPROL XL [Suspect]
     Indication: SUPRAVENTRICULAR EXTRASYSTOLES
     Route: 048
  7. TOPROL XL [Suspect]
     Indication: VENTRICULAR EXTRASYSTOLES
     Dosage: GENERIC TOPROL XL
     Route: 048
  8. TOPROL XL [Suspect]
     Indication: HYPERTENSION
     Dosage: GENERIC TOPROL XL
     Route: 048
  9. TOPROL XL [Suspect]
     Indication: SUPRAVENTRICULAR EXTRASYSTOLES
     Dosage: GENERIC TOPROL XL
     Route: 048
  10. VALIUM [Concomitant]
  11. OXYGEN [Concomitant]
  12. ECOTRIN [Concomitant]
  13. DIOVAN [Concomitant]
  14. HYDRALAZINE [Concomitant]
  15. DIABETIC PILLS [Concomitant]

REACTIONS (4)
  - Weight decreased [Unknown]
  - Heart rate irregular [Unknown]
  - Drug ineffective [Unknown]
  - Off label use [Unknown]
